FAERS Safety Report 16282479 (Version 3)
Quarter: 2019Q2

REPORT INFORMATION
  Report Type: Spontaneous
  Country: US (occurrence: US)
  Receive Date: 20190507
  Receipt Date: 20190619
  Transmission Date: 20190711
  Serious: No
  Sender: FDA-Public Use
  Company Number: US-PFIZER INC-2019189368

PATIENT
  Age: 50 Year
  Sex: Female
  Weight: 95.25 kg

DRUGS (3)
  1. TIROSINT [Concomitant]
     Active Substance: LEVOTHYROXINE SODIUM
     Indication: THYROID THERAPY
     Dosage: 75 UG, DAILY
     Route: 048
  2. FRAGMIN [Suspect]
     Active Substance: DALTEPARIN SODIUM
     Indication: DEEP VEIN THROMBOSIS
     Dosage: 1800 UNITS IN 0.72 ML INJECTION NIGHTLY AT 9 PM (ONCE A DAY)
     Dates: start: 20190426
  3. METFORMIN [Concomitant]
     Active Substance: METFORMIN HYDROCHLORIDE
     Indication: INSULIN RESISTANCE
     Dosage: 500 MG, 3X/DAY (1 TABLET 3 TIMES PER DAY)
     Route: 048

REACTIONS (6)
  - White blood cell count decreased [Unknown]
  - Platelet count decreased [Unknown]
  - Haemoglobin decreased [Unknown]
  - Photophobia [Unknown]
  - Haematocrit decreased [Unknown]
  - Red blood cell count decreased [Unknown]

NARRATIVE: CASE EVENT DATE: 20190426
